FAERS Safety Report 8945887 (Version 1)
Quarter: 2012Q4

REPORT INFORMATION
  Report Type: 
  Country: US (occurrence: US)
  Receive Date: 20121204
  Receipt Date: 20121204
  Transmission Date: 20130627
  Serious: No
  Sender: FDA-Public Use
  Company Number: US-AMGEN-USASP2012073588

PATIENT
  Age: 50 Year
  Sex: Female

DRUGS (2)
  1. ENBREL [Suspect]
     Indication: PSORIATIC ARTHROPATHY
     Dosage: 50 mg, qwk
     Dates: start: 20121002
  2. METHOTREXATE [Concomitant]
     Dosage: 15 mg, qwk

REACTIONS (2)
  - Muscle twitching [Not Recovered/Not Resolved]
  - Joint effusion [Not Recovered/Not Resolved]
